FAERS Safety Report 8484494-0 (Version None)
Quarter: 2012Q3

REPORT INFORMATION
  Report Type: 
  Country: None (occurrence: None)
  Receive Date: 20120703
  Receipt Date: 20120702
  Transmission Date: 20120928
  Serious: Yes (Other)
  Sender: FDA-Public Use
  Company Number: PHEH2010US03465

PATIENT
  Sex: Male

DRUGS (9)
  1. VINCRISTINE [Suspect]
  2. DEXAMETHASONE [Concomitant]
  3. THALIDOMIDE [Suspect]
     Dosage: 50 MG, QD
  4. TEGRETOL [Concomitant]
     Dosage: 200 MG, BID
  5. OXYCONTIN [Concomitant]
  6. CLONAZEPAM [Concomitant]
     Dosage: 0.5 MG
  7. ZOMETA [Suspect]
     Dosage: 4 MG, QMO
     Route: 042
  8. AREDIA [Suspect]
     Route: 042
  9. NEURONTIN [Concomitant]
     Dosage: 300 MG, TID

REACTIONS (35)
  - OSTEONECROSIS OF JAW [None]
  - PARAESTHESIA [None]
  - FEMUR FRACTURE [None]
  - CELLULITIS [None]
  - MENTAL DISORDER [None]
  - RHINITIS ALLERGIC [None]
  - PAIN IN JAW [None]
  - AMNESIA [None]
  - DEFORMITY [None]
  - MULTIPLE MYELOMA [None]
  - NASAL SEPTUM DEVIATION [None]
  - PNEUMONIA [None]
  - HEPATITIS ACUTE [None]
  - FEBRILE NEUTROPENIA [None]
  - DEPRESSION [None]
  - PERIODONTITIS [None]
  - INFECTION [None]
  - INJURY [None]
  - NEUROPATHY PERIPHERAL [None]
  - OTITIS EXTERNA [None]
  - OSTEOMYELITIS [None]
  - ERECTILE DYSFUNCTION [None]
  - OSTEOLYSIS [None]
  - OVERDOSE [None]
  - OSTEOARTHRITIS [None]
  - NEUROTOXICITY [None]
  - SPONDYLOLISTHESIS [None]
  - INTERVERTEBRAL DISC DEGENERATION [None]
  - ORAL CAVITY FISTULA [None]
  - ANAEMIA [None]
  - PAIN [None]
  - HYPOAESTHESIA ORAL [None]
  - OSTEONECROSIS [None]
  - GASTROOESOPHAGEAL REFLUX DISEASE [None]
  - TINNITUS [None]
